FAERS Safety Report 19183395 (Version 2)
Quarter: 2021Q3

REPORT INFORMATION
  Report Type: Spontaneous
  Country: AU (occurrence: AU)
  Receive Date: 20210427
  Receipt Date: 20210816
  Transmission Date: 20211014
  Serious: Yes (Other)
  Sender: FDA-Public Use
  Company Number: AU-ASTRAZENECA-2021A356287

PATIENT
  Sex: Female

DRUGS (1)
  1. SEROQUEL [Suspect]
     Active Substance: QUETIAPINE FUMARATE
     Indication: PRODUCT USED FOR UNKNOWN INDICATION
     Route: 065
     Dates: start: 2019, end: 2020

REACTIONS (5)
  - Blood pressure decreased [Unknown]
  - Drug dependence [Unknown]
  - Syncope [Unknown]
  - Weight increased [Unknown]
  - Muscle spasms [Not Recovered/Not Resolved]
